FAERS Safety Report 9315626 (Version 3)
Quarter: 2013Q4

REPORT INFORMATION
  Report Type: Spontaneous
  Country: US (occurrence: US)
  Receive Date: 20130529
  Receipt Date: 20131205
  Transmission Date: 20140711
  Serious: Yes (Death, Hospitalization, Other)
  Sender: FDA-Public Use
  Company Number: US-B.I. PHARMACEUTICALS,INC./RIDGEFIELD-2013-BI-14698BP

PATIENT
  Age: 76 Year
  Sex: Male
  Weight: 90.72 kg

DRUGS (14)
  1. PRADAXA [Suspect]
     Indication: DEEP VEIN THROMBOSIS
     Dosage: 300 MG
     Route: 048
     Dates: start: 20110329, end: 20111014
  2. PRADAXA [Suspect]
     Indication: ATRIAL FIBRILLATION
  3. ACETAMINOPHEN [Concomitant]
     Indication: PAIN
     Route: 048
  4. BENAZEPRIL [Concomitant]
     Dosage: 5 MG
     Route: 048
  5. GLIPIZIDE [Concomitant]
     Dosage: 10 MG
     Route: 048
  6. SYNTHROID [Concomitant]
     Dosage: 175 MCG
     Route: 048
  7. TAMSULOSIN [Concomitant]
     Dosage: 0.4 MG
     Route: 048
  8. OXYCODONE [Concomitant]
  9. ONE TOUCH ULTRA STRIPS [Concomitant]
  10. LEVOTHYROXIN [Concomitant]
  11. TYLENOL [Concomitant]
  12. FISH OIL [Concomitant]
  13. EQUATE GAS RELIEF [Concomitant]
  14. EQUATE LACTASE ENZYME [Concomitant]

REACTIONS (5)
  - Cerebral haemorrhage [Fatal]
  - Subarachnoid haemorrhage [Fatal]
  - Pneumonia [Fatal]
  - Haemorrhagic stroke [Unknown]
  - Coagulopathy [Unknown]
